FAERS Safety Report 13969293 (Version 1)
Quarter: 2017Q3

REPORT INFORMATION
  Report Type: Spontaneous
  Country: US (occurrence: US)
  Receive Date: 20170914
  Receipt Date: 20170914
  Transmission Date: 20171128
  Serious: No
  Sender: FDA-Public Use
  Company Number: US-INTERPRAG-PM-OCA2017-00584

PATIENT

DRUGS (1)
  1. OCALIVA [Suspect]
     Active Substance: OBETICHOLIC ACID
     Indication: BILIARY CIRRHOSIS PRIMARY
     Dosage: 5 MG, QD DAILY
     Route: 048
     Dates: start: 20170426

REACTIONS (4)
  - Hypersensitivity [Unknown]
  - Constipation [Unknown]
  - Pruritus [Unknown]
  - Dizziness [Unknown]
